FAERS Safety Report 7921553-2 (Version None)
Quarter: 2011Q4

REPORT INFORMATION
  Report Type: 
  Country: None (occurrence: None)
  Receive Date: 20111117
  Receipt Date: 20111110
  Transmission Date: 20120403
  Serious: Yes (Death, Other)
  Sender: FDA-Public Use
  Company Number: IL-TEVA-309363ISR

PATIENT
  Sex: Female

DRUGS (17)
  1. CAPECITABINE [Suspect]
     Indication: BREAST CANCER
  2. IRINOTECAN HCL [Suspect]
     Indication: BREAST CANCER
  3. MITOMYCIN [Suspect]
     Indication: BREAST CANCER
  4. VINORELBINE [Suspect]
     Indication: BREAST CANCER
  5. FULVESTRANT [Suspect]
     Indication: BREAST CANCER
  6. ARIMIDEX [Suspect]
     Indication: BREAST CANCER
  7. DOXORUBICIN HCL [Suspect]
     Indication: BREAST CANCER
  8. CYCLOPHOSPHAMIDE [Suspect]
     Indication: BREAST CANCER
  9. PACLITAXEL [Suspect]
     Indication: BREAST CANCER
  10. TAMOXIFEN CITRATE [Suspect]
     Indication: BREAST CANCER
  11. GEMCITABINE [Suspect]
     Indication: BREAST CANCER
  12. BEVACIZUMAB [Suspect]
     Indication: BREAST CANCER
  13. DOCETAXEL [Suspect]
     Indication: BREAST CANCER
  14. CARBOPLATIN [Suspect]
     Indication: BREAST CANCER
  15. EXEMESTANE [Suspect]
     Indication: BREAST CANCER
  16. MEGESTROL ACETATE [Suspect]
     Indication: BREAST CANCER
  17. FUROSEMIDE [Concomitant]

REACTIONS (2)
  - HEPATIC FAILURE [None]
  - HEPATIC CIRRHOSIS [None]
